FAERS Safety Report 8863279 (Version 1)
Quarter: 2012Q4

REPORT INFORMATION
  Report Type: 
  Country: US (occurrence: US)
  Receive Date: 20121025
  Receipt Date: 20121025
  Transmission Date: 20130627
  Serious: Yes (Other)
  Sender: FDA-Public Use
  Company Number: US-PFIZER INC-2012265220

PATIENT
  Age: 48 Year
  Sex: Female

DRUGS (10)
  1. PROTONIX [Suspect]
     Dosage: UNK
     Route: 065
  2. CORTEF [Suspect]
  3. ESTRADIOL [Suspect]
     Route: 065
  4. CALCIUM CARBONATE [Suspect]
  5. FLUDROCORTISONE [Suspect]
  6. SANDOSTATIN LAR [Suspect]
     Dosage: 30 mg daily
  7. GLIMEPIRIDE [Suspect]
  8. VITAMIN D [Suspect]
  9. MULTIVITAMINS WITH MINERALS [Suspect]
  10. IMITREX [Suspect]

REACTIONS (1)
  - Neoplasm malignant [Unknown]
